FAERS Safety Report 7003422-8 (Version None)
Quarter: 2010Q3

REPORT INFORMATION
  Report Type: 
  Country: None (occurrence: None)
  Receive Date: 20100920
  Receipt Date: 20100913
  Transmission Date: 20110219
  Serious: No
  Sender: FDA-Public Use
  Company Number: US-PFIZER INC-2010091302

PATIENT
  Sex: Female
  Weight: 63.502 kg

DRUGS (14)
  1. ZOLOFT [Suspect]
     Indication: DEPRESSION
     Dosage: 50MG DAILY
  2. ZOLOFT [Suspect]
     Dosage: 100 MG, 1X/DAY
     Route: 048
     Dates: start: 20091001, end: 20100501
  3. NOVOLOG [Concomitant]
     Indication: TYPE 1 DIABETES MELLITUS
  4. LIPITOR [Concomitant]
  5. EVISTA [Concomitant]
  6. LEVOXYL [Concomitant]
  7. FOLTX [Concomitant]
  8. ASCORBIC ACID/COPPER/RETINOL/TOCOPHEROL/ZINC [Concomitant]
  9. FISH OIL [Concomitant]
  10. VITAMIN D [Concomitant]
  11. CALCIUM WITH VITAMIN D [Concomitant]
     Dosage: 1200 MG, 1X/DAY
  12. COLACE [Concomitant]
     Dosage: 400 MG, 1X/DAY
  13. NIACIN [Concomitant]
     Dosage: 1500 MG, 1X/DAY
  14. MULTIVITAMINS AND IRON [Concomitant]

REACTIONS (1)
  - LEUKOPLAKIA [None]
